FAERS Safety Report 11517177 (Version 2)
Quarter: 2019Q4

REPORT INFORMATION
  Report Type: Spontaneous
  Country: GB (occurrence: GB)
  Receive Date: 20150917
  Receipt Date: 20191015
  Transmission Date: 20200122
  Serious: Yes (Life-Threatening, Hospitalization, Disabling, Other)
  Sender: FDA-Public Use
  Company Number: GB-TEVA-592516ACC

PATIENT
  Age: 32 Year
  Sex: Female
  Weight: 50.8 kg

DRUGS (9)
  1. DIAZEPAM. [Suspect]
     Active Substance: DIAZEPAM
     Indication: ANXIETY
     Route: 048
     Dates: start: 20120101, end: 20150830
  2. CODEINE PHOSPHATE [Concomitant]
     Active Substance: CODEINE PHOSPHATE
  3. PROZAC [Suspect]
     Active Substance: FLUOXETINE HYDROCHLORIDE
     Indication: DEPRESSION
     Route: 048
     Dates: start: 20120101, end: 20141231
  4. CITALOPRAM [Suspect]
     Active Substance: CITALOPRAM HYDROBROMIDE
     Indication: DEPRESSION
     Route: 048
     Dates: start: 20150101, end: 20150401
  5. TEMAZEPAM. [Suspect]
     Active Substance: TEMAZEPAM
     Indication: ANXIETY
     Route: 048
     Dates: start: 20120101, end: 20150830
  6. TRAMADOL. [Concomitant]
     Active Substance: TRAMADOL
  7. ZOLPIDEM [Concomitant]
     Active Substance: ZOLPIDEM TARTRATE
  8. CYCLIZINE [Concomitant]
     Active Substance: CYCLIZINE
  9. ZOPICLONE [Concomitant]
     Active Substance: ZOPICLONE

REACTIONS (21)
  - Sleep disorder [Unknown]
  - Suicidal behaviour [Recovering/Resolving]
  - Depression suicidal [Not Recovered/Not Resolved]
  - Intentional self-injury [Recovering/Resolving]
  - Hyperhidrosis [Unknown]
  - Impaired work ability [Unknown]
  - Maternal exposure during pregnancy [Unknown]
  - Mood swings [Not Recovered/Not Resolved]
  - Personality change [Unknown]
  - Aggression [Recovered/Resolved with Sequelae]
  - Restlessness [Unknown]
  - Agoraphobia [Not Recovered/Not Resolved]
  - Mood altered [Not Recovered/Not Resolved]
  - Anxiety disorder [Not Recovered/Not Resolved]
  - Overdose [Unknown]
  - Mental impairment [Unknown]
  - Amnesia [Not Recovered/Not Resolved]
  - Acute psychosis [Recovered/Resolved with Sequelae]
  - Delusion [Unknown]
  - Weight increased [Unknown]
  - Withdrawal syndrome [Not Recovered/Not Resolved]
